FAERS Safety Report 11810072 (Version 1)
Quarter: 2015Q4

REPORT INFORMATION
  Report Type: Spontaneous
  Country: US (occurrence: None)
  Receive Date: 20151207
  Receipt Date: 20151207
  Transmission Date: 20160305
  Serious: Yes (Other)
  Sender: FDA-Public Use
  Company Number: None

PATIENT
  Age: 63 Year
  Sex: Male
  Weight: 86.6 kg

DRUGS (1)
  1. DARATUMUMAB JANSSEN [Suspect]
     Active Substance: DARATUMUMAB
     Route: 042

REACTIONS (1)
  - Product label confusion [None]

NARRATIVE: CASE EVENT DATE: 20151204
